FAERS Safety Report 25154884 (Version 1)
Quarter: 2025Q2

REPORT INFORMATION
  Report Type: Report from Study
  Country: US (occurrence: US)
  Receive Date: 20250403
  Receipt Date: 20250403
  Transmission Date: 20250716
  Serious: Yes (Hospitalization)
  Sender: ABBVIE
  Company Number: US-ABBVIE-6202250

PATIENT
  Age: 63 Year
  Sex: Male

DRUGS (1)
  1. SKYRIZI [Suspect]
     Active Substance: RISANKIZUMAB-RZAA
     Indication: Crohn^s disease
     Route: 058
     Dates: start: 20241204

REACTIONS (6)
  - Headache [Unknown]
  - Dyspnoea [Unknown]
  - Cough [Unknown]
  - Haemorrhage [Unknown]
  - Cardiac failure congestive [Unknown]
  - Pseudopolyp [Unknown]

NARRATIVE: CASE EVENT DATE: 20250321
